FAERS Safety Report 14985380 (Version 1)
Quarter: 2018Q2

REPORT INFORMATION
  Report Type: Spontaneous
  Country: GB (occurrence: GB)
  Receive Date: 20180607
  Receipt Date: 20180607
  Transmission Date: 20180711
  Serious: Yes (Hospitalization, Other)
  Sender: FDA-Public Use
  Company Number: GB-TEVA-2018-GB-903036

PATIENT
  Age: 71 Year
  Sex: Female
  Weight: 65 kg

DRUGS (10)
  1. SERTRALINE [Concomitant]
     Active Substance: SERTRALINE HYDROCHLORIDE
     Dosage: 1 DOSAGE FORMS DAILY;
     Dates: start: 20171227, end: 20180124
  2. ESTRADIOL. [Concomitant]
     Active Substance: ESTRADIOL
     Dosage: 2 DOSAGE FORMS DAILY; AT NIGHT.
     Dates: start: 20170929
  3. ATORVASTATIN [Suspect]
     Active Substance: ATORVASTATIN
     Dates: start: 20170503
  4. GAVISCON ADVANCE [Concomitant]
     Active Substance: POTASSIUM BICARBONATE\SODIUM ALGINATE
     Dosage: 10 ML DAILY; AT NIGHT.
     Dates: start: 20170503
  5. ARTIFICIAL SALIVA [Concomitant]
     Dosage: USE AS DIRECTED.
     Dates: start: 20171227, end: 20180124
  6. VENTOLIN [Concomitant]
     Active Substance: ALBUTEROL SULFATE
     Dosage: 1-2 DOSES UP TO FOUR TIMES DAILY.
     Route: 055
     Dates: start: 20170503
  7. LANSOPRAZOLE. [Concomitant]
     Active Substance: LANSOPRAZOLE
     Dosage: 1 DOSAGE FORMS DAILY;
     Dates: start: 20171220, end: 20180117
  8. METFORMIN [Concomitant]
     Active Substance: METFORMIN HYDROCHLORIDE
     Dosage: 4 DOSAGE FORMS DAILY; TAKE 2 AFTER BREAKFAST.
     Dates: start: 20170503
  9. BETAXOLOL HYDROCHLORIDE. [Concomitant]
     Active Substance: BETAXOLOL HYDROCHLORIDE
     Dosage: 2 GTT DAILY;
     Dates: start: 20170718
  10. RAMIPRIL. [Concomitant]
     Active Substance: RAMIPRIL
     Dosage: 1 DOSAGE FORMS DAILY;
     Dates: start: 20170718

REACTIONS (2)
  - Blood creatine phosphokinase increased [Unknown]
  - Liver injury [Recovering/Resolving]

NARRATIVE: CASE EVENT DATE: 20180103
